FAERS Safety Report 7239233-8 (Version None)
Quarter: 2011Q1

REPORT INFORMATION
  Report Type: 
  Country: None (occurrence: None)
  Receive Date: 20110119
  Receipt Date: 20110119
  Transmission Date: 20110831
  Serious: Yes (Other)
  Sender: FDA-Public Use
  Company Number: None

PATIENT
  Age: 49 Year
  Sex: Male
  Weight: 127.0072 kg

DRUGS (1)
  1. ZICAM COLD REMEDY NASAL GEL ZINCUM GLUCONICUM 2X ZICAM LLC PHOENIX, AZ [Suspect]
     Indication: NASOPHARYNGITIS
     Dosage: PUMP VIA NOSE AS NEEDED NASAL
     Route: 045
     Dates: start: 20080201, end: 20080510

REACTIONS (3)
  - ANOSMIA [None]
  - AGEUSIA [None]
  - DRUG INEFFECTIVE [None]
